FAERS Safety Report 21687567 (Version 1)
Quarter: 2022Q4

REPORT INFORMATION
  Report Type: Spontaneous
  Country: US (occurrence: None)
  Receive Date: 20221206
  Receipt Date: 20221206
  Transmission Date: 20230112
  Serious: No
  Sender: FDA-Public Use
  Company Number: 2022A381242

PATIENT

DRUGS (1)
  1. PULMICORT FLEXHALER [Suspect]
     Active Substance: BUDESONIDE
     Dosage: FOR 1 WEEK180UG/MG TWO TIMES A DAY
     Route: 055
     Dates: start: 2022

REACTIONS (4)
  - Nervousness [Unknown]
  - Device issue [Unknown]
  - Device malfunction [Unknown]
  - Product label confusion [Unknown]
